FAERS Safety Report 25128975 (Version 2)
Quarter: 2025Q1

REPORT INFORMATION
  Report Type: Spontaneous
  Country: US (occurrence: US)
  Receive Date: 20250327
  Receipt Date: 20250327
  Transmission Date: 20250408
  Serious: Yes (Hospitalization, Other)
  Sender: TEVA
  Company Number: US-TEVA-VS-3311466

PATIENT
  Age: 11 Year
  Sex: Female

DRUGS (4)
  1. METFORMIN [Suspect]
     Active Substance: METFORMIN HYDROCHLORIDE
     Indication: Steroid diabetes
     Route: 065
     Dates: start: 2022
  2. DEXAMETHASONE [Suspect]
     Active Substance: DEXAMETHASONE
     Indication: Ganglioglioma
     Route: 065
     Dates: start: 2022, end: 2022
  3. DEXAMETHASONE [Suspect]
     Active Substance: DEXAMETHASONE
     Indication: Ganglioglioma
     Route: 065
     Dates: start: 2022, end: 2022
  4. BEVACIZUMAB [Concomitant]
     Active Substance: BEVACIZUMAB
     Indication: Ganglioglioma
     Route: 042
     Dates: start: 2022, end: 2022

REACTIONS (7)
  - Hypertension [Unknown]
  - Impaired healing [Unknown]
  - Cellulitis [Unknown]
  - Steroid diabetes [Recovering/Resolving]
  - Drug ineffective [Unknown]
  - Obesity [Recovering/Resolving]
  - Sleep apnoea syndrome [Unknown]

NARRATIVE: CASE EVENT DATE: 20220101
